FAERS Safety Report 7373673-1 (Version None)
Quarter: 2011Q1

REPORT INFORMATION
  Report Type: 
  Country: None (occurrence: None)
  Receive Date: 20110325
  Receipt Date: 20110311
  Transmission Date: 20110831
  Serious: Yes (Other)
  Sender: FDA-Public Use
  Company Number: JP-RANBAXY-2011RR-42970

PATIENT
  Age: 15 Year
  Sex: Female

DRUGS (2)
  1. FLUVOXAMINE [Suspect]
     Indication: DEPRESSION
     Dosage: 25 MG, UNK
  2. ZOLPIDEM [Suspect]
     Indication: INSOMNIA
     Dosage: 5 MG, UNK

REACTIONS (2)
  - SOMNAMBULISM [None]
  - DRUG INTERACTION [None]
